FAERS Safety Report 18708040 (Version 2)
Quarter: 2021Q1

REPORT INFORMATION
  Report Type: Spontaneous
  Country: US (occurrence: US)
  Receive Date: 20210106
  Receipt Date: 20210301
  Transmission Date: 20210419
  Serious: Yes (Other)
  Sender: FDA-Public Use
  Company Number: US-ALXN-A202119507

PATIENT
  Sex: Female
  Weight: 55 kg

DRUGS (1)
  1. ULTOMIRIS [Suspect]
     Active Substance: RAVULIZUMAB-CWVZ
     Indication: PAROXYSMAL NOCTURNAL HAEMOGLOBINURIA
     Dosage: 3000 MG EVERY 8 WEEKS
     Route: 042
     Dates: start: 201911

REACTIONS (2)
  - Therapy non-responder [Not Recovered/Not Resolved]
  - Blood product transfusion dependent [Not Recovered/Not Resolved]
